FAERS Safety Report 18570957 (Version 1)
Quarter: 2020Q4

REPORT INFORMATION
  Report Type: Spontaneous
  Country: US (occurrence: US)
  Receive Date: 20201202
  Receipt Date: 20201202
  Transmission Date: 20210114
  Serious: No
  Sender: FDA-Public Use
  Company Number: US-NOVEN PHARMACEUTICALS, INC.-2020US003668

PATIENT
  Sex: Female
  Weight: 58.96 kg

DRUGS (4)
  1. AGX ESTRADIOL FOR MINIVELLE [Suspect]
     Active Substance: ESTRADIOL
     Indication: OFF LABEL USE
     Dosage: 0.075 MG, 3-4 DAYS(1 TRANSDERMAL PATCH EVERY 3-4)
     Route: 062
     Dates: start: 202001, end: 2020
  2. TESTOSTERONE. [Concomitant]
     Active Substance: TESTOSTERONE
     Indication: PRODUCT USED FOR UNKNOWN INDICATION
     Dosage: UNK
     Route: 065
  3. AGX ESTRADIOL FOR MINIVELLE [Suspect]
     Active Substance: ESTRADIOL
     Indication: HORMONE REPLACEMENT THERAPY
  4. PROGESTERONE. [Concomitant]
     Active Substance: PROGESTERONE
     Indication: PRODUCT USED FOR UNKNOWN INDICATION
     Dosage: UNK
     Route: 065

REACTIONS (3)
  - Application site erythema [Unknown]
  - Off label use [Recovered/Resolved]
  - Application site pruritus [Unknown]

NARRATIVE: CASE EVENT DATE: 2020
